FAERS Safety Report 18526639 (Version 1)
Quarter: 2020Q4

REPORT INFORMATION
  Report Type: Spontaneous
  Country: US (occurrence: US)
  Receive Date: 20201119
  Receipt Date: 20201119
  Transmission Date: 20210114
  Serious: Yes (Hospitalization)
  Sender: FDA-Public Use
  Company Number: None

PATIENT
  Sex: Female
  Weight: 53.1 kg

DRUGS (2)
  1. CAMPTOSAR [Suspect]
     Active Substance: IRINOTECAN HYDROCHLORIDE
  2. VINCRISTINE SULFATE. [Suspect]
     Active Substance: VINCRISTINE SULFATE

REACTIONS (13)
  - Viral infection [None]
  - Erythema [None]
  - Photophobia [None]
  - Malaise [None]
  - Pain [None]
  - Body temperature increased [None]
  - Chills [None]
  - Dizziness [None]
  - Periorbital cellulitis [None]
  - Headache [None]
  - Swelling of eyelid [None]
  - Fatigue [None]
  - Neutrophil count decreased [None]

NARRATIVE: CASE EVENT DATE: 20201108
